FAERS Safety Report 25656667 (Version 1)
Quarter: 2025Q3

REPORT INFORMATION
  Report Type: Spontaneous
  Country: EU (occurrence: EU)
  Receive Date: 20250807
  Receipt Date: 20250807
  Transmission Date: 20251021
  Serious: Yes (Other)
  Sender: NOVO NORDISK
  Company Number: EU-NOVOPROD-1491584

PATIENT
  Age: 46 Year
  Sex: Male
  Weight: 120 kg

DRUGS (2)
  1. OZEMPIC [Suspect]
     Active Substance: SEMAGLUTIDE
     Indication: Type 2 diabetes mellitus
     Dates: start: 20250227
  2. OZEMPIC [Suspect]
     Active Substance: SEMAGLUTIDE
     Indication: Type 2 diabetes mellitus
     Dosage: 0.5 MG, QD

REACTIONS (10)
  - Blood triglycerides increased [Unknown]
  - Gastroenteritis viral [Recovered/Resolved]
  - Muscle spasms [Recovered/Resolved]
  - Diarrhoea [Recovered/Resolved]
  - Nausea [Unknown]
  - Diarrhoea [Unknown]
  - Flatulence [Unknown]
  - Abdominal pain [Unknown]
  - Abdominal distension [Unknown]
  - Vomiting [Unknown]

NARRATIVE: CASE EVENT DATE: 20250227
